FAERS Safety Report 19078282 (Version 2)
Quarter: 2021Q2

REPORT INFORMATION
  Report Type: Report from Study
  Country: BR (occurrence: BR)
  Receive Date: 20210331
  Receipt Date: 20210410
  Transmission Date: 20210717
  Serious: Yes (Death, Hospitalization)
  Sender: FDA-Public Use
  Company Number: NVSC2021BR069755

PATIENT
  Age: 73 Year
  Sex: Male

DRUGS (1)
  1. COSENTYX [Suspect]
     Active Substance: SECUKINUMAB
     Indication: PSORIASIS
     Dosage: UNK
     Route: 065
     Dates: start: 201902

REACTIONS (4)
  - Death [Fatal]
  - Malaise [Unknown]
  - COVID-19 [Unknown]
  - Impaired healing [Unknown]

NARRATIVE: CASE EVENT DATE: 20210305
